FAERS Safety Report 14264131 (Version 1)
Quarter: 2017Q4

REPORT INFORMATION
  Report Type: Spontaneous
  Country: US (occurrence: US)
  Receive Date: 20171208
  Receipt Date: 20171208
  Transmission Date: 20180321
  Serious: No
  Sender: FDA-Public Use
  Company Number: US-VIFOR (INTERNATIONAL) INC.-VIT-2017-00457

PATIENT
  Age: 42 Year
  Sex: Female

DRUGS (10)
  1. VELTASSA [Suspect]
     Active Substance: PATIROMER
     Indication: HYPERKALAEMIA
     Route: 048
     Dates: start: 20161216
  2. RENVELA [Concomitant]
     Active Substance: SEVELAMER CARBONATE
  3. DIALYVITE [Concomitant]
     Active Substance: ASCORBIC ACID\BIOTIN\CALCIUM PANTOTHENATE\COBALAMIN\FOLIC ACID\NIACINAMIDE\PYRIDOXINE HYDROCHLORIDE\RIBOFLAVIN\THIAMINE MONONITRATE
  4. KEPPRA [Concomitant]
     Active Substance: LEVETIRACETAM
  5. GABAPENTIN. [Concomitant]
     Active Substance: GABAPENTIN
  6. SENSIPAR [Concomitant]
     Active Substance: CINACALCET HYDROCHLORIDE
  7. TRAMADOL. [Concomitant]
     Active Substance: TRAMADOL
  8. PLAVIX [Concomitant]
     Active Substance: CLOPIDOGREL BISULFATE
  9. AMBIEN [Concomitant]
     Active Substance: ZOLPIDEM TARTRATE
  10. MIDORINE [Concomitant]
     Active Substance: MIDODRINE

REACTIONS (3)
  - Frequent bowel movements [Not Recovered/Not Resolved]
  - Drug dose omission [Not Recovered/Not Resolved]
  - Diarrhoea [Not Recovered/Not Resolved]

NARRATIVE: CASE EVENT DATE: 20170828
